FAERS Safety Report 12605985 (Version 3)
Quarter: 2016Q3

REPORT INFORMATION
  Report Type: Spontaneous
  Country: US (occurrence: US)
  Receive Date: 20160729
  Receipt Date: 20160921
  Transmission Date: 20161109
  Serious: No
  Sender: FDA-Public Use
  Company Number: US-PFIZER INC-2016340632

PATIENT
  Age: 74 Year
  Sex: Male

DRUGS (13)
  1. TRIAMCINOLON [Concomitant]
     Dosage: UNK (0.1 %)
  2. LISINOPRIL. [Concomitant]
     Active Substance: LISINOPRIL
     Dosage: 20 MG, UNK
  3. LISINOPRIL. [Concomitant]
     Active Substance: LISINOPRIL
     Dosage: 5 MG, UNK
  4. TAMSULOSIN [Concomitant]
     Active Substance: TAMSULOSIN
     Dosage: 0.4 MG, UNK
  5. TERBINAFINE. [Concomitant]
     Active Substance: TERBINAFINE
     Dosage: UNK
  6. SUTENT [Suspect]
     Active Substance: SUNITINIB MALATE
     Indication: GASTRIC CANCER
     Dosage: 37.5 MG, CYCLIC(TAKE 1 CAPSULE BY MOUTH DAILY FOR 4 WEEKS ON, THEN 2 WEEKS OFF)
     Route: 048
  7. BISOPRL/HCTZ [Concomitant]
     Dosage: UNK (BISOPROLOL FUMARATE:10/ HYDROCHLOROTHIAZIDE: 6.25)
  8. LEVOTHYROXIN [Concomitant]
     Active Substance: LEVOTHYROXINE
     Dosage: 25 UG, UNK
  9. SIMVASTATIN. [Concomitant]
     Active Substance: SIMVASTATIN
     Dosage: 80 MG, UNK
  10. AMLODIPINE [Concomitant]
     Active Substance: AMLODIPINE BESYLATE
     Dosage: 2.5 MG, UNK
  11. OMEPRAZOLE. [Concomitant]
     Active Substance: OMEPRAZOLE
     Dosage: 40 MG, UNK
  12. FLONASE [Concomitant]
     Active Substance: FLUTICASONE PROPIONATE
     Dosage: 50 UG, UNK
  13. GRANISETRON [Concomitant]
     Active Substance: GRANISETRON
     Dosage: 1 MG, UNK

REACTIONS (4)
  - Abdominal discomfort [Not Recovered/Not Resolved]
  - Disease progression [Unknown]
  - Gastric cancer [Unknown]
  - Diarrhoea [Not Recovered/Not Resolved]
